FAERS Safety Report 11311920 (Version 1)
Quarter: 2015Q3

REPORT INFORMATION
  Report Type: Spontaneous
  Country: US (occurrence: None)
  Receive Date: 20150724
  Receipt Date: 20150724
  Transmission Date: 20151125
  Serious: No
  Sender: FDA-Public Use
  Company Number: None

PATIENT
  Age: 57 Year
  Sex: Female

DRUGS (6)
  1. CEFEPINE [Concomitant]
  2. VORICONAZOLE. [Concomitant]
     Active Substance: VORICONAZOLE
  3. VORICONAZOLE. [Suspect]
     Active Substance: VORICONAZOLE
     Indication: FEBRILE NEUTROPENIA
     Route: 042
     Dates: start: 20150410, end: 20150417
  4. LANSOPRAZOLE. [Concomitant]
     Active Substance: LANSOPRAZOLE
  5. ACYCLOVIR. [Concomitant]
     Active Substance: ACYCLOVIR
  6. FILGRASTIM [Concomitant]
     Active Substance: FILGRASTIM

REACTIONS (2)
  - Febrile neutropenia [None]
  - Blood potassium decreased [None]

NARRATIVE: CASE EVENT DATE: 20150414
